FAERS Safety Report 5515738-2 (Version None)
Quarter: 2007Q4

REPORT INFORMATION
  Report Type: 
  Country: None (occurrence: None)
  Receive Date: 20071114
  Receipt Date: 20071106
  Transmission Date: 20080405
  Serious: Yes (Other)
  Sender: FDA-Public Use
  Company Number: PHBS2007FR18614

PATIENT
  Age: 85 Year
  Sex: Male

DRUGS (2)
  1. PAMIDRONATE DISODIUM [Suspect]
     Indication: OSTEITIS DEFORMANS
     Dosage: 180 MG/YEAR
     Dates: end: 20020101
  2. PAMIDRONATE DISODIUM [Suspect]
     Dosage: 240 MG/YEAR
     Dates: start: 20020101, end: 20050101

REACTIONS (3)
  - OSTEONECROSIS [None]
  - PAIN IN JAW [None]
  - SURGERY [None]
